FAERS Safety Report 11566272 (Version 1)
Quarter: 2015Q3

REPORT INFORMATION
  Report Type: Spontaneous
  Country: US (occurrence: US)
  Receive Date: 20150916
  Receipt Date: 20150916
  Transmission Date: 20151125
  Serious: Yes (Hospitalization, Other)
  Sender: FDA-Public Use
  Company Number: US-ELI_LILLY_AND_COMPANY-US200906000376

PATIENT
  Sex: Female

DRUGS (2)
  1. XOPENEX [Concomitant]
     Active Substance: LEVALBUTEROL HYDROCHLORIDE
     Dates: start: 20090506
  2. FORTEO [Suspect]
     Active Substance: TERIPARATIDE
     Indication: OSTEOPOROSIS
     Dates: end: 20090429

REACTIONS (12)
  - Depression [Unknown]
  - Anxiety [Unknown]
  - Cardiac valve disease [Unknown]
  - Syncope [Unknown]
  - Decreased appetite [Unknown]
  - Upper-airway cough syndrome [Unknown]
  - Diaphragmatic paralysis [Unknown]
  - Chronic kidney disease [Unknown]
  - Hypothyroidism [Unknown]
  - Dyspnoea [Recovering/Resolving]
  - Ventricular extrasystoles [Unknown]
  - Weight decreased [Unknown]

NARRATIVE: CASE EVENT DATE: 2009
